FAERS Safety Report 16097191 (Version 3)
Quarter: 2019Q4

REPORT INFORMATION
  Report Type: Report from Study
  Country: US (occurrence: US)
  Receive Date: 20190320
  Receipt Date: 20191118
  Transmission Date: 20200122
  Serious: Yes (Hospitalization, Other)
  Sender: FDA-Public Use
  Company Number: US-ACTELION-A-NJ2018-178429

PATIENT
  Age: 69 Year
  Sex: Female
  Weight: 96.6 kg

DRUGS (4)
  1. VELETRI [Suspect]
     Active Substance: EPOPROSTENOL
     Indication: PULMONARY ARTERIAL HYPERTENSION
     Dosage: 20.83 NG/KG, PER MIN
     Route: 042
  2. VELETRI [Suspect]
     Active Substance: EPOPROSTENOL
     Dosage: 19.1 NG/KG, PER MIN
     Route: 042
  3. LETAIRIS [Concomitant]
     Active Substance: AMBRISENTAN
  4. REVATIO [Concomitant]
     Active Substance: SILDENAFIL CITRATE

REACTIONS (15)
  - Anuria [Unknown]
  - Cardiac murmur [Unknown]
  - Pneumonia [Unknown]
  - Gastroenteritis viral [Unknown]
  - Sinus disorder [Unknown]
  - Product dispensing issue [Recovering/Resolving]
  - Headache [Unknown]
  - Cough [Unknown]
  - Device leakage [Recovering/Resolving]
  - Diarrhoea [Recovering/Resolving]
  - Condition aggravated [Unknown]
  - Catheter site discharge [Unknown]
  - Influenza [Unknown]
  - Nasopharyngitis [Unknown]
  - Flushing [Unknown]

NARRATIVE: CASE EVENT DATE: 20181015
